FAERS Safety Report 9248199 (Version 1)
Quarter: 2013Q1

REPORT INFORMATION
  Report Type: Spontaneous
  Country: US (occurrence: None)
  Receive Date: 20130305
  Receipt Date: 20130305
  Transmission Date: 20140127
  Serious: Yes (Other)
  Sender: FDA-Public Use
  Company Number: 163-21880-12092272

PATIENT
  Age: 74 Year
  Sex: Male
  Weight: 90.72 kg

DRUGS (11)
  1. REVLIMID [Suspect]
     Indication: MYELODYSPLASTIC SYNDROME
     Dosage: 10MG, 1 IN 1 D, PO
     Route: 048
     Dates: start: 20080214
  2. ALPHA LIPOIC (THIOTIC ACID) [Concomitant]
  3. ASPIRIN (ACETYLSALICYLIC) [Concomitant]
  4. FLONASE (FLUTICASONE PROPIONATE) [Concomitant]
  5. FOLIC ACID (FOLIC ACID) [Concomitant]
  6. GLUCOSAMINE (GLUCOSAMINE) [Concomitant]
  7. LISINOPRIL/HCTZ (PRINZIDE) [Concomitant]
  8. VITAMINS [Concomitant]
  9. VITAMIN B6 (PYRIDOXINE HYDROCHLORIDE) [Concomitant]
  10. VITAMIN C [Concomitant]
  11. VITAMIN D (ERGOCALCIFEROL) [Concomitant]

REACTIONS (1)
  - Nasopharyngitis [None]
